FAERS Safety Report 23826440 (Version 1)
Quarter: 2024Q2

REPORT INFORMATION
  Report Type: Spontaneous
  Country: US (occurrence: US)
  Receive Date: 20240507
  Receipt Date: 20240507
  Transmission Date: 20240715
  Serious: No
  Sender: FDA-Public Use
  Company Number: US-UCBSA-2024003496

PATIENT
  Age: 48 Year
  Sex: Female
  Weight: 91.61 kg

DRUGS (4)
  1. CIMZIA [Suspect]
     Active Substance: CERTOLIZUMAB PEGOL
     Indication: Rheumatoid arthritis
     Dosage: 400 MILLIGRAM, EV 4 WEEKS
     Route: 058
  2. BOTOX [Concomitant]
     Active Substance: ONABOTULINUMTOXINA
     Indication: Product used for unknown indication
     Dosage: UNK
  3. ACTHAR [Concomitant]
     Active Substance: CORTICOTROPIN
     Indication: Product used for unknown indication
     Dosage: UNK
  4. HP [HEPARINOID] [Concomitant]
     Indication: Product used for unknown indication
     Dosage: UNK

REACTIONS (8)
  - Visual impairment [Unknown]
  - Migraine [Unknown]
  - Herpes zoster [Unknown]
  - Diplopia [Unknown]
  - Disturbance in attention [Unknown]
  - Paraesthesia [Unknown]
  - Neck pain [Unknown]
  - Balance disorder [Unknown]

NARRATIVE: CASE EVENT DATE: 20231001
